FAERS Safety Report 7604609-3 (Version None)
Quarter: 2011Q3

REPORT INFORMATION
  Report Type: 
  Country: None (occurrence: None)
  Receive Date: 20110712
  Receipt Date: 20110705
  Transmission Date: 20111222
  Serious: Yes (Other)
  Sender: FDA-Public Use
  Company Number: DE-B.I. PHARMACEUTICALS,INC./RIDGEFIELD-2011-DE-03906DE

PATIENT
  Sex: Male

DRUGS (1)
  1. CLONIDINE HCL [Suspect]
     Dosage: 0.5 AMPOULE
     Route: 042

REACTIONS (3)
  - CARDIAC FAILURE [None]
  - HYPOXIA [None]
  - PULMONARY OEDEMA [None]
